FAERS Safety Report 7242553-4 (Version None)
Quarter: 2010Q4

REPORT INFORMATION
  Report Type: 
  Country: None (occurrence: None)
  Receive Date: 20101130
  Receipt Date: 20090724
  Transmission Date: 20110411
  Serious: Yes (Hospitalization)
  Sender: FDA-Public Use
  Company Number: 2009SP016965

PATIENT
  Age: 33 Year
  Sex: Female
  Weight: 54.4316 kg

DRUGS (4)
  1. NUVARING [Suspect]
     Indication: CONTRACEPTION
     Dosage: 1 DF; QM; VAG
     Route: 067
     Dates: start: 20050729, end: 20051201
  2. CEPHALEXIN [Concomitant]
  3. TYLENOL-500 [Concomitant]
  4. IMITREX [Concomitant]

REACTIONS (7)
  - EMBOLIC STROKE [None]
  - ENCEPHALOMALACIA [None]
  - FIBROADENOMA OF BREAST [None]
  - INFLUENZA [None]
  - MIGRAINE [None]
  - PHLEBITIS [None]
  - WEIGHT DECREASED [None]
